FAERS Safety Report 23580687 (Version 1)
Quarter: 2024Q1

REPORT INFORMATION
  Report Type: Spontaneous
  Country: NL (occurrence: NL)
  Receive Date: 20240229
  Receipt Date: 20240229
  Transmission Date: 20240410
  Serious: Yes (Hospitalization)
  Sender: FDA-Public Use
  Company Number: None

PATIENT
  Age: 52 Year
  Sex: Female
  Weight: 157 kg

DRUGS (6)
  1. DOXORUBICIN [Suspect]
     Active Substance: DOXORUBICIN
     Indication: B-cell lymphoma
     Dosage: 1X100MG IV, DOXORUBICINE INF CONC 2MG/ML (PEG-LIPOSOMAL) / BRAND NAME NOT SPECIFIED
     Route: 065
     Dates: start: 20231130
  2. VINCRISTINE [Suspect]
     Active Substance: VINCRISTINE
     Indication: B-cell lymphoma
     Dosage: 1X 2MG IV, INJECTION/INFUSE / BRAND NAME NOT SPECIFIED
     Route: 065
     Dates: start: 20231130
  3. METOCLOPRAMIDE [Concomitant]
     Active Substance: METOCLOPRAMIDE
     Indication: Product used for unknown indication
     Dosage: BRAND NAME NOT SPECIFIED
     Route: 065
  4. RITUXIMAB [Suspect]
     Active Substance: RITUXIMAB
     Indication: B-cell lymphoma
     Dosage: 1X 100MG IV, DRIP / BRAND NAME NOT SPECIFIED
     Route: 065
     Dates: start: 20231130
  5. FOLIC ACID [Concomitant]
     Active Substance: FOLIC ACID
     Indication: Product used for unknown indication
     Dosage: BRAND NAME NOT SPECIFIED
     Route: 065
  6. PREDNISOLONE [Suspect]
     Active Substance: PREDNISOLONE
     Indication: B-cell lymphoma
     Dosage: BRAND NAME NOT SPECIFIED
     Route: 065
     Dates: start: 20231130

REACTIONS (2)
  - Angular cheilitis [Recovered/Resolved]
  - Mucosal inflammation [Recovered/Resolved]
